FAERS Safety Report 10258860 (Version 2)
Quarter: 2014Q2

REPORT INFORMATION
  Report Type: Spontaneous
  Country: US (occurrence: US)
  Receive Date: 20140625
  Receipt Date: 20140625
  Transmission Date: 20141212
  Serious: Yes (Other)
  Sender: FDA-Public Use
  Company Number: US-ASTELLAS-2013US008224

PATIENT
  Age: 79 Year
  Sex: Female

DRUGS (2)
  1. VESICARE [Suspect]
     Indication: MICTURITION URGENCY
     Route: 048
     Dates: start: 2013, end: 201307
  2. UNSPECIFIED MEDICATION FOR OPEN ANGLE GLAUCOMA [Concomitant]
     Indication: OPEN ANGLE GLAUCOMA
     Route: 065

REACTIONS (5)
  - Drug dose omission [Unknown]
  - Drug ineffective [Unknown]
  - Urinary retention [Unknown]
  - Headache [Unknown]
  - Vision blurred [Unknown]
